FAERS Safety Report 18625106 (Version 1)
Quarter: 2020Q4

REPORT INFORMATION
  Report Type: Report from Study
  Country: None (occurrence: US)
  Receive Date: 20201217
  Receipt Date: 20201217
  Transmission Date: 20210114
  Serious: Yes (Other)
  Sender: FDA-Public Use
  Company Number: US-ABBVIE-20K-163-3555918-00

PATIENT
  Sex: Male

DRUGS (2)
  1. HUMIRA [Suspect]
     Active Substance: ADALIMUMAB
     Indication: CROHN^S DISEASE
     Dosage: CITRATE FREE
     Route: 058
  2. HUMIRA [Suspect]
     Active Substance: ADALIMUMAB
     Dosage: CITRATE FREE
     Route: 058

REACTIONS (6)
  - Pain [Recovered/Resolved]
  - Fistula [Recovering/Resolving]
  - Therapeutic product effect incomplete [Unknown]
  - Anal abscess [Recovered/Resolved]
  - Procedural pain [Unknown]
  - Drug level abnormal [Recovered/Resolved]

NARRATIVE: CASE EVENT DATE: 2020
